FAERS Safety Report 8538361-4 (Version None)
Quarter: 2012Q3

REPORT INFORMATION
  Report Type: 
  Country: None (occurrence: None)
  Receive Date: 20120726
  Receipt Date: 20120723
  Transmission Date: 20120928
  Serious: No
  Sender: FDA-Public Use
  Company Number: US-PFIZER INC-2012169171

PATIENT
  Sex: Male

DRUGS (2)
  1. LYRICA [Suspect]
     Dosage: UNK
  2. SYMBICORT [Suspect]
     Indication: OROPHARYNGEAL PAIN
     Dosage: UNK

REACTIONS (1)
  - DRY MOUTH [None]
